FAERS Safety Report 9165792 (Version 1)
Quarter: 2013Q1

REPORT INFORMATION
  Report Type: Spontaneous
  Country: GB (occurrence: None)
  Receive Date: 20130228
  Receipt Date: 20130228
  Transmission Date: 20140127
  Serious: Yes (Other)
  Sender: FDA-Public Use
  Company Number: KAD201302-000249

PATIENT
  Age: 51 Year
  Sex: Male

DRUGS (3)
  1. RIBAVIRIN (RIBAVIRIN) [Suspect]
     Route: 048
     Dates: start: 20121107
  2. TELAPREVIR (TELAPREVIR) [Suspect]
     Dosage: (THRICE DAILY)
     Route: 048
     Dates: start: 20121107
  3. PEGINTERFERON ALFA-2B (PEGINTERFERON ALFA-2B) [Suspect]
     Dosage: SUBCUTANEOUS
     Dates: start: 20121107

REACTIONS (7)
  - Anger [None]
  - Diarrhoea [None]
  - Haemorrhoids [None]
  - Headache [None]
  - Nausea [None]
  - Tearfulness [None]
  - Tooth abscess [None]
